FAERS Safety Report 16887301 (Version 1)
Quarter: 2019Q4

REPORT INFORMATION
  Report Type: Spontaneous
  Country: KR (occurrence: KR)
  Receive Date: 20191004
  Receipt Date: 20191004
  Transmission Date: 20200122
  Serious: Yes (Hospitalization, Other)
  Sender: FDA-Public Use
  Company Number: KR-009507513-1910KOR000987

PATIENT
  Age: 58 Year
  Sex: Male

DRUGS (3)
  1. SINEMET [Suspect]
     Active Substance: CARBIDOPA\LEVODOPA
     Indication: PARKINSON^S DISEASE
     Dosage: 8 DOSAGE FORM, QD
     Route: 048
  2. SINEMET CR [Suspect]
     Active Substance: CARBIDOPA\LEVODOPA
     Indication: PARKINSON^S DISEASE
     Route: 048
  3. SINEMET [Suspect]
     Active Substance: CARBIDOPA\LEVODOPA
     Dosage: 5 DOSAGE FORM, THE TOTAL LEVODOPA DOSE WAS MAINTAINED AT ABOUT 1200 MG
     Route: 048

REACTIONS (4)
  - Dopamine dysregulation syndrome [Unknown]
  - Parkinsonism hyperpyrexia syndrome [Unknown]
  - Prescribed overdose [Unknown]
  - Parkinsonism hyperpyrexia syndrome [Recovered/Resolved]

NARRATIVE: CASE EVENT DATE: 2004
